FAERS Safety Report 15434923 (Version 4)
Quarter: 2018Q4

REPORT INFORMATION
  Report Type: Report from Study
  Country: CA (occurrence: CA)
  Receive Date: 20180927
  Receipt Date: 20181226
  Transmission Date: 20190204
  Serious: Yes (Other)
  Sender: FDA-Public Use
  Company Number: CA-JNJFOC-20180521336

PATIENT
  Age: 79 Year
  Sex: Female
  Weight: 86.18 kg

DRUGS (1)
  1. REMICADE [Suspect]
     Active Substance: INFLIXIMAB
     Indication: RHEUMATOID ARTHRITIS
     Dosage: ALSO REPORTED AS 5MG/KG
     Route: 042
     Dates: start: 20050425

REACTIONS (3)
  - Back pain [Recovering/Resolving]
  - Basal cell carcinoma [Not Recovered/Not Resolved]
  - Drug ineffective [Unknown]

NARRATIVE: CASE EVENT DATE: 2018
